FAERS Safety Report 22144233 (Version 1)
Quarter: 2023Q1

REPORT INFORMATION
  Report Type: Spontaneous
  Country: IT (occurrence: IT)
  Receive Date: 20230328
  Receipt Date: 20230328
  Transmission Date: 20230418
  Serious: Yes (Hospitalization, Other)
  Sender: FDA-Public Use
  Company Number: None

PATIENT
  Age: 79 Year
  Sex: Male

DRUGS (6)
  1. ASPIRIN [Suspect]
     Active Substance: ASPIRIN
     Indication: Cardiovascular event prophylaxis
     Dosage: 100 MG, QD (DOSSAGIO: 100 UNITA DI MISURA: MILLIGRAMMI FREQUENZA SOMMINISTRAZIONE: QUOTIDIANA VIA SO
     Route: 048
     Dates: start: 20181001, end: 20221003
  2. XARELTO [Suspect]
     Active Substance: RIVAROXABAN
     Indication: Atrial fibrillation
     Dosage: 20 MG, QD (DOSAGGIO: 20 UNITA DI MISURA: MILLIGRAMMI FREQUENZA SOMMINISTRAZIONE: QUOTIDIANA)
     Route: 048
     Dates: start: 20190101, end: 20221003
  3. TOUJEO [Concomitant]
     Active Substance: INSULIN GLARGINE
     Indication: Type 2 diabetes mellitus
     Dosage: 18 IU (DOSSAGIO: 18 UNITA DI MISURA: UNITA INTERNAZIONALI INFERIOR A 100 VIA SOMMINISTRAZIONE: SOTTO
     Route: 058
  4. ENOXAPARIN SODIUM [Concomitant]
     Active Substance: ENOXAPARIN SODIUM
     Indication: Thrombosis prophylaxis
     Dosage: 4000 IU, QD (DOSSAGIO: 4000 UNITA DI MISURA: UNITA INTERNAZIONALI, IN MIGLIAIA VIA SOMMINISTRAZIONE:
     Route: 058
  5. LASIX [Concomitant]
     Active Substance: FUROSEMIDE
     Indication: Oedema due to cardiac disease
     Dosage: 50 MG (DOSAAGIO: 50 UNITA DI MISURA: MILLIGRAMMI VIA SOMMINISTRAZIONE: ORALE)
     Route: 048
  6. INSULIN LISPRO [Concomitant]
     Active Substance: INSULIN LISPRO
     Indication: Type 2 diabetes mellitus
     Dosage: UNK
     Route: 065

REACTIONS (2)
  - Subdural haematoma [Recovered/Resolved]
  - Ecchymosis [Recovering/Resolving]

NARRATIVE: CASE EVENT DATE: 20220929
